FAERS Safety Report 16972155 (Version 1)
Quarter: 2019Q4

REPORT INFORMATION
  Report Type: Spontaneous
  Country: AM (occurrence: US)
  Receive Date: 20191029
  Receipt Date: 20191029
  Transmission Date: 20200122
  Serious: No
  Sender: FDA-Public Use
  Company Number: PHHY2019AM227472

PATIENT

DRUGS (2)
  1. DICLAC [Suspect]
     Active Substance: DICLOFENAC
     Indication: POLYARTHRITIS
     Dosage: 150 MG, QD
     Route: 065
     Dates: start: 2008
  2. CEFTRIAXONE. [Concomitant]
     Active Substance: CEFTRIAXONE
     Indication: POLYARTHRITIS
     Dosage: UNK
     Route: 065
     Dates: start: 2008

REACTIONS (1)
  - Drug ineffective [Unknown]
